FAERS Safety Report 21509636 (Version 2)
Quarter: 2022Q4

REPORT INFORMATION
  Report Type: Spontaneous
  Country: US (occurrence: US)
  Receive Date: 20221026
  Receipt Date: 20221208
  Transmission Date: 20230112
  Serious: Yes (Other)
  Sender: FDA-Public Use
  Company Number: US-MYLANLABS-2022M1112002

PATIENT
  Age: 80 Year
  Sex: Female

DRUGS (1)
  1. ESTRADIOL TRANSDERMAL SYSTEM [Suspect]
     Active Substance: ESTRADIOL
     Indication: Hysterectomy
     Dosage: UNK
     Route: 062

REACTIONS (2)
  - Breast cancer [Unknown]
  - Cerebrovascular accident [Unknown]
